FAERS Safety Report 7625655-X (Version None)
Quarter: 2011Q3

REPORT INFORMATION
  Report Type: 
  Country: None (occurrence: None)
  Receive Date: 20110721
  Receipt Date: 20110711
  Transmission Date: 20111222
  Serious: Yes (Hospitalization)
  Sender: FDA-Public Use
  Company Number: FR-SANOFI-AVENTIS-2011SA043845

PATIENT
  Age: 59 Year
  Sex: Male

DRUGS (8)
  1. ALDACTONE [Suspect]
     Route: 048
     Dates: start: 20110401, end: 20110510
  2. ALFUZOSIN HCL [Concomitant]
     Route: 048
  3. LACTULOSE [Concomitant]
     Dosage: DOSE:1 UNIT(S)
     Route: 048
     Dates: end: 20110515
  4. FERROUS SULFATE TAB [Concomitant]
     Route: 048
     Dates: end: 20110515
  5. JANUVIA [Concomitant]
     Indication: TYPE 2 DIABETES MELLITUS
     Route: 048
     Dates: end: 20110515
  6. LASIX [Suspect]
     Route: 048
     Dates: end: 20110515
  7. EFFEXOR [Concomitant]
     Indication: DEPRESSION
     Dosage: DOSE:1 UNIT(S)
     Route: 048
     Dates: end: 20110515
  8. METFORMIN [Suspect]
     Indication: TYPE 2 DIABETES MELLITUS
     Route: 048

REACTIONS (3)
  - RENAL FAILURE [None]
  - LACTIC ACIDOSIS [None]
  - HYPERKALAEMIA [None]
